FAERS Safety Report 16204092 (Version 2)
Quarter: 2019Q2

REPORT INFORMATION
  Report Type: Report from Study
  Country: MX (occurrence: MX)
  Receive Date: 20190416
  Receipt Date: 20190503
  Transmission Date: 20190711
  Serious: Yes (Other)
  Sender: FDA-Public Use
  Company Number: MX-009507513-1904MEX006723

PATIENT
  Sex: Female
  Weight: 75 kg

DRUGS (1)
  1. HYZAAR [Suspect]
     Active Substance: HYDROCHLOROTHIAZIDE\LOSARTAN POTASSIUM
     Indication: HYPERTENSION
     Dosage: 1 TABLET, EVERY 24 HOURS
     Route: 048
     Dates: end: 2018

REACTIONS (3)
  - Deafness [Not Recovered/Not Resolved]
  - Drug ineffective [Unknown]
  - Ear injury [Unknown]

NARRATIVE: CASE EVENT DATE: 2017
